FAERS Safety Report 15138167 (Version 1)
Quarter: 2018Q3

REPORT INFORMATION
  Report Type: Spontaneous
  Country: ES (occurrence: ES)
  Receive Date: 20180713
  Receipt Date: 20180713
  Transmission Date: 20181010
  Serious: Yes (Death, Hospitalization)
  Sender: FDA-Public Use
  Company Number: ES-TEVA-2018-ES-924465

PATIENT
  Age: 85 Year
  Sex: Male

DRUGS (2)
  1. ENALAPRIL MALEATO (2142MA) [Suspect]
     Active Substance: ENALAPRIL MALEATE
     Indication: HYPERTENSION
     Dosage: 20 MILLIGRAM DAILY;
     Route: 048
     Dates: start: 20160610, end: 20180505
  2. SEPTRIN FORTE 160 MG/800 MG COMPRIMIDOS, 20 COMPRIMIDOS [Interacting]
     Active Substance: SULFAMETHOXAZOLE\TRIMETHOPRIM
     Indication: RESPIRATORY TRACT INFECTION
     Route: 048
     Dates: start: 20180503, end: 20180505

REACTIONS (4)
  - Drug interaction [Fatal]
  - Hyperkalaemia [Fatal]
  - Atrioventricular block complete [Fatal]
  - Acute kidney injury [Fatal]

NARRATIVE: CASE EVENT DATE: 20180505
